FAERS Safety Report 6413293-6 (Version None)
Quarter: 2009Q4

REPORT INFORMATION
  Report Type: 
  Country: None (occurrence: None)
  Receive Date: 20091026
  Receipt Date: 20091012
  Transmission Date: 20100525
  Serious: Yes (Other)
  Sender: FDA-Public Use
  Company Number: TN-ROCHE-662037

PATIENT
  Age: 27 Year
  Sex: Female

DRUGS (2)
  1. ALL-TRANS-RETINOIC ACID [Suspect]
     Route: 065
  2. IDARUBICIN HCL [Suspect]
     Dosage: ON DAY 2, 4, 6, 8
     Route: 065

REACTIONS (2)
  - PULMONARY OEDEMA [None]
  - TRANSFUSION-RELATED ACUTE LUNG INJURY [None]
